FAERS Safety Report 16737751 (Version 1)
Quarter: 2019Q3

REPORT INFORMATION
  Report Type: Spontaneous
  Country: US (occurrence: US)
  Receive Date: 20190823
  Receipt Date: 20190823
  Transmission Date: 20191005
  Serious: Yes (Disabling)
  Sender: FDA-Public Use
  Company Number: US-ELI_LILLY_AND_COMPANY-US201908007158

PATIENT
  Sex: Female

DRUGS (1)
  1. HUMALOG [Suspect]
     Active Substance: INSULIN LISPRO
     Indication: TYPE 1 DIABETES MELLITUS
     Dosage: UNK UNK, UNKNOWN
     Route: 050
     Dates: start: 1994

REACTIONS (5)
  - Spinal stenosis [Unknown]
  - Visual impairment [Unknown]
  - Neuropathy peripheral [Unknown]
  - Optic neuritis [Unknown]
  - Optic atrophy [Unknown]

NARRATIVE: CASE EVENT DATE: 2002
